FAERS Safety Report 9140945 (Version 2)
Quarter: 2013Q1

REPORT INFORMATION
  Report Type: Spontaneous
  Country: US (occurrence: US)
  Receive Date: 20130305
  Receipt Date: 20130321
  Transmission Date: 20140127
  Serious: Yes (Other)
  Sender: FDA-Public Use
  Company Number: US-PFIZER INC-2013074326

PATIENT
  Age: 63 Year
  Sex: Male
  Weight: 92.97 kg

DRUGS (8)
  1. EFFEXOR XR [Suspect]
     Indication: DEPRESSION
     Dosage: 150 MG, 1X/DAY
     Route: 048
     Dates: start: 2003, end: 2010
  2. EFFEXOR XR [Suspect]
     Indication: ANXIETY
  3. VENLAFAXINE HYDROCHLORIDE [Suspect]
     Indication: DEPRESSION
     Dosage: 37.5 MG, 1X/DAY
     Dates: start: 2010, end: 2013
  4. VENLAFAXINE HYDROCHLORIDE [Suspect]
     Indication: ANXIETY
  5. LIPITOR [Concomitant]
     Dosage: 10MG OR ^20^ UNITS NOT PROVIDED 1X/DAY
  6. LIPITOR [Concomitant]
     Dosage: UNK
  7. ASPIRIN [Concomitant]
     Dosage: 81 MG, UNK
  8. PRILOSEC [Concomitant]
     Dosage: 20 MG, UNK

REACTIONS (6)
  - Suicidal ideation [Unknown]
  - Drug ineffective [Unknown]
  - Feeling abnormal [Unknown]
  - Suffocation feeling [Unknown]
  - Feeling abnormal [Unknown]
  - Panic attack [Unknown]
